FAERS Safety Report 6745651-4 (Version None)
Quarter: 2010Q2

REPORT INFORMATION
  Report Type: 
  Country: None (occurrence: None)
  Receive Date: 20100526
  Receipt Date: 20100421
  Transmission Date: 20101027
  Serious: Yes (Hospitalization)
  Sender: FDA-Public Use
  Company Number: 571607

PATIENT
  Age: 41 Year
  Sex: Female

DRUGS (6)
  1. CYTARABINE [Suspect]
  2. FLUDARABINE PHOSPHATE [Suspect]
  3. (DASATINIB) [Suspect]
     Dosage: 140 MG MILLIGRAM(S)
     Dates: end: 20100129
  4. (FILGRASTIM) [Suspect]
  5. IDARUBICIN HCL [Suspect]
  6. IMATINIB MESILATE [Concomitant]

REACTIONS (3)
  - FEBRILE NEUTROPENIA [None]
  - PULMONARY MASS [None]
  - RASH [None]
